FAERS Safety Report 16043441 (Version 2)
Quarter: 2019Q2

REPORT INFORMATION
  Report Type: Spontaneous
  Country: US (occurrence: US)
  Receive Date: 20190306
  Receipt Date: 20190425
  Transmission Date: 20190711
  Serious: Yes (Other)
  Sender: FDA-Public Use
  Company Number: US-ASTRAZENECA-2018SF14610

PATIENT
  Age: 15995 Day
  Sex: Male

DRUGS (32)
  1. PROGRAF [Concomitant]
     Active Substance: TACROLIMUS\TACROLIMUS ANHYDROUS
  2. NEXIUM 24HR [Suspect]
     Active Substance: ESOMEPRAZOLE MAGNESIUM
     Route: 048
  3. PREVACID [Suspect]
     Active Substance: LANSOPRAZOLE
     Route: 065
  4. PROTONIX [Suspect]
     Active Substance: PANTOPRAZOLE SODIUM
     Route: 065
  5. PREDNISONE. [Concomitant]
     Active Substance: PREDNISONE
  6. LANTUS [Concomitant]
     Active Substance: INSULIN GLARGINE
  7. VALCYTE [Concomitant]
     Active Substance: VALGANCICLOVIR HYDROCHLORIDE
  8. NEXIUM [Suspect]
     Active Substance: ESOMEPRAZOLE MAGNESIUM
     Route: 048
     Dates: start: 20060101, end: 20160101
  9. PRILOSEC [Suspect]
     Active Substance: OMEPRAZOLE MAGNESIUM
     Route: 048
  10. PRILOSEC [Suspect]
     Active Substance: OMEPRAZOLE MAGNESIUM
     Route: 048
  11. MIRALAX [Concomitant]
     Active Substance: POLYETHYLENE GLYCOL 3350
  12. PRAVACHOL [Concomitant]
     Active Substance: PRAVASTATIN SODIUM
  13. TYLENOL [Concomitant]
     Active Substance: ACETAMINOPHEN
  14. NEXIUM [Suspect]
     Active Substance: ESOMEPRAZOLE MAGNESIUM
     Route: 048
  15. NEXIUM 24HR [Suspect]
     Active Substance: ESOMEPRAZOLE MAGNESIUM
     Route: 048
     Dates: start: 20140328, end: 20160101
  16. DAPSONE. [Concomitant]
     Active Substance: DAPSONE
  17. COLACE [Concomitant]
     Active Substance: DOCUSATE SODIUM
  18. LASIX [Concomitant]
     Active Substance: FUROSEMIDE
  19. BENAZEPRIL [Concomitant]
     Active Substance: BENAZEPRIL HYDROCHLORIDE
  20. ZOFRAN [Concomitant]
     Active Substance: ONDANSETRON HYDROCHLORIDE
  21. PREVACID 24 HR [Suspect]
     Active Substance: LANSOPRAZOLE
     Route: 065
  22. HYDRALAZINE [Concomitant]
     Active Substance: HYDRALAZINE HYDROCHLORIDE
  23. INSULIN [Concomitant]
     Active Substance: INSULIN NOS
  24. METOPROLOL. [Concomitant]
     Active Substance: METOPROLOL
  25. NORVASC [Concomitant]
     Active Substance: AMLODIPINE BESYLATE
  26. COZAAR [Concomitant]
     Active Substance: LOSARTAN POTASSIUM
  27. NEXIUM [Suspect]
     Active Substance: ESOMEPRAZOLE MAGNESIUM
     Route: 048
     Dates: start: 20150320
  28. PREVACID [Suspect]
     Active Substance: LANSOPRAZOLE
     Route: 065
     Dates: start: 20060101, end: 20160101
  29. CLONIDINE. [Concomitant]
     Active Substance: CLONIDINE
  30. MYFORTIC [Concomitant]
     Active Substance: MYCOPHENOLATE SODIUM
  31. NIFEDIPINE. [Concomitant]
     Active Substance: NIFEDIPINE
  32. LIPITOR [Concomitant]
     Active Substance: ATORVASTATIN CALCIUM

REACTIONS (5)
  - Acute kidney injury [Unknown]
  - Chronic kidney disease [Unknown]
  - Renal injury [Unknown]
  - End stage renal disease [Unknown]
  - Renal failure [Unknown]

NARRATIVE: CASE EVENT DATE: 20081203
